FAERS Safety Report 8875891 (Version 1)
Quarter: 2012Q4

REPORT INFORMATION
  Report Type: 
  Country: US (occurrence: US)
  Receive Date: 20121030
  Receipt Date: 20121030
  Transmission Date: 20130627
  Serious: Yes (Death, Life-Threatening, Hospitalization, Other)
  Sender: FDA-Public Use
  Company Number: US-ROXANE LABORATORIES, INC.-2012-RO-02224RO

PATIENT
  Age: 89 Year
  Sex: Female

DRUGS (5)
  1. METHOTREXATE [Suspect]
     Dosage: 7.5 mg
     Route: 048
  2. LEUCOVORIN CALCIUM [Suspect]
  3. DOPAMINE [Suspect]
  4. G-CSF [Suspect]
  5. BICARBONATE [Suspect]

REACTIONS (6)
  - Respiratory failure [Fatal]
  - Sepsis [Unknown]
  - Hypotension [Unknown]
  - Pancytopenia [Unknown]
  - Intestinal haemorrhage [Unknown]
  - Drug dispensing error [Unknown]
